FAERS Safety Report 9281327 (Version 2)
Quarter: 2013Q2

REPORT INFORMATION
  Report Type: Spontaneous
  Country: IL (occurrence: IL)
  Receive Date: 20130509
  Receipt Date: 20130520
  Transmission Date: 20140414
  Serious: Yes (Other)
  Sender: FDA-Public Use
  Company Number: IL-AMGEN-ISRSP2013031984

PATIENT
  Age: 73 Year
  Sex: Male

DRUGS (4)
  1. NEULASTIM [Suspect]
     Indication: UNEVALUABLE EVENT
     Dosage: UNK
     Route: 065
  2. NEUPOGEN [Suspect]
     Indication: CHRONIC LYMPHOCYTIC LEUKAEMIA
     Dosage: UNK
     Route: 065
  3. MABTHERA [Suspect]
     Indication: CHRONIC LYMPHOCYTIC LEUKAEMIA
     Dosage: UNK
     Route: 065
     Dates: start: 20130402
  4. BENDAMUSTINE [Suspect]
     Indication: CHRONIC LYMPHOCYTIC LEUKAEMIA
     Dosage: UNK
     Route: 065
     Dates: start: 20130410

REACTIONS (3)
  - Herpes virus infection [Unknown]
  - Oral herpes [Unknown]
  - Drug interaction [Unknown]
